FAERS Safety Report 9576846 (Version 5)
Quarter: 2013Q4

REPORT INFORMATION
  Report Type: Spontaneous
  Country: US (occurrence: US)
  Receive Date: 20131001
  Receipt Date: 20131031
  Transmission Date: 20140711
  Serious: Yes (Hospitalization)
  Sender: FDA-Public Use
  Company Number: US-BAXTER-2013BAX036930

PATIENT
  Age: 40 Year
  Sex: Female

DRUGS (3)
  1. DIANEAL LOW CALCIUM [Suspect]
     Indication: RENAL FAILURE CHRONIC
     Route: 033
  2. DIANEAL LOW CALCIUM [Suspect]
     Indication: RENAL FAILURE CHRONIC
     Route: 033
  3. DIANEAL LOW CALCIUM (ULTRABAG) [Suspect]
     Indication: WEIGHT CONTROL
     Route: 033
     Dates: start: 20131004, end: 20131005

REACTIONS (5)
  - Chest pain [Recovered/Resolved]
  - Myocardial infarction [Recovering/Resolving]
  - Peritoneal dialysis complication [Unknown]
  - Pulmonary oedema [Recovering/Resolving]
  - Hypertension [Unknown]
